FAERS Safety Report 7805617-X (Version None)
Quarter: 2011Q4

REPORT INFORMATION
  Report Type: 
  Country: None (occurrence: None)
  Receive Date: 20111010
  Receipt Date: 20110930
  Transmission Date: 20120403
  Serious: Yes (Hospitalization)
  Sender: FDA-Public Use
  Company Number: US-ASTRAZENECA-2011SE49546

PATIENT
  Age: 73 Year
  Sex: Female
  Weight: 68 kg

DRUGS (12)
  1. SEROQUEL [Suspect]
     Route: 048
  2. SEROQUEL [Suspect]
     Route: 048
  3. SEROQUEL [Suspect]
     Indication: SCHIZOPHRENIA
     Route: 048
  4. SEROQUEL [Suspect]
     Route: 048
     Dates: start: 20110801
  5. SEROQUEL [Suspect]
     Route: 048
  6. SEROQUEL [Suspect]
     Indication: BIPOLAR DISORDER
     Route: 048
  7. PROSAC [Concomitant]
     Indication: ANXIETY
  8. ATIVAN [Concomitant]
     Indication: ANXIETY
  9. SEROQUEL [Suspect]
     Route: 048
     Dates: start: 20110801
  10. SEROQUEL [Suspect]
     Route: 048
  11. SEROQUEL [Suspect]
     Route: 048
  12. SEROQUEL [Suspect]
     Route: 048

REACTIONS (14)
  - PARANOIA [None]
  - PSYCHIATRIC SYMPTOM [None]
  - ANXIETY [None]
  - DRUG EFFECT DECREASED [None]
  - HALLUCINATION, AUDITORY [None]
  - WRONG TECHNIQUE IN DRUG USAGE PROCESS [None]
  - FAECES HARD [None]
  - INAPPROPRIATE AFFECT [None]
  - TREMOR [None]
  - PERSONALITY DISORDER [None]
  - SLOW RESPONSE TO STIMULI [None]
  - FEELING ABNORMAL [None]
  - DRY MOUTH [None]
  - WEIGHT INCREASED [None]
